FAERS Safety Report 21467603 (Version 1)
Quarter: 2022Q4

REPORT INFORMATION
  Report Type: Spontaneous
  Country: US (occurrence: US)
  Receive Date: 20221017
  Receipt Date: 20221017
  Transmission Date: 20230112
  Serious: No
  Sender: FDA-Public Use
  Company Number: US-ALLERGAN-2134848US

PATIENT
  Age: 65 Year
  Sex: Female

DRUGS (9)
  1. LINZESS [Suspect]
     Active Substance: LINACLOTIDE
     Indication: Constipation
     Dosage: 72 MCG EVERY OTHER DAY OR EVERY 3 DAYS AS NEEDED(REPORTED DATES: 31-JUL-2021, 03-AUG-2021, 05-AUG-20
     Route: 048
     Dates: start: 20210731
  2. LINZESS [Suspect]
     Active Substance: LINACLOTIDE
     Dosage: ONE DOSE 200 MCG/THE HIGHEST DOSE; HCP TOLD HER TO TAKE IT EVERY OTHER DAY OR EVERY 3 DAYS AS NEEDED
     Route: 048
     Dates: start: 202105, end: 202105
  3. OXYCODONE [Concomitant]
     Active Substance: OXYCODONE
     Indication: Pain
  4. RAMIPRIL [Concomitant]
     Active Substance: RAMIPRIL
     Indication: Hypertension
  5. CYMBALTA [Concomitant]
     Active Substance: DULOXETINE HYDROCHLORIDE
  6. GABAPENTIN [Concomitant]
     Active Substance: GABAPENTIN
  7. METHOCARBAMOL [Concomitant]
     Active Substance: METHOCARBAMOL
  8. ACETAMINOPHEN\CHLORZOXAZONE [Concomitant]
     Active Substance: ACETAMINOPHEN\CHLORZOXAZONE
     Dosage: AT NIGHT
  9. UNSPECIFIED INGREDIENT [Concomitant]
     Active Substance: UNSPECIFIED INGREDIENT
     Indication: Muscle relaxant therapy

REACTIONS (3)
  - Frequent bowel movements [Not Recovered/Not Resolved]
  - Off label use [Unknown]
  - Diarrhoea [Not Recovered/Not Resolved]

NARRATIVE: CASE EVENT DATE: 20210501
